FAERS Safety Report 7028679-9 (Version None)
Quarter: 2010Q4

REPORT INFORMATION
  Report Type: 
  Country: None (occurrence: None)
  Receive Date: 20101005
  Receipt Date: 20100927
  Transmission Date: 20110411
  Serious: No
  Sender: FDA-Public Use
  Company Number: US-JNJFOC-20100908696

PATIENT
  Sex: Male
  Weight: 96.62 kg

DRUGS (4)
  1. FENTANYL [Suspect]
     Indication: ARTHRITIS
     Route: 062
  2. LASIX [Concomitant]
     Indication: FLUID RETENTION
     Route: 048
  3. COREG CR [Concomitant]
     Indication: CARDIAC DISORDER
     Route: 048
  4. OXYCODONE [Concomitant]
     Indication: BREAKTHROUGH PAIN
     Route: 048

REACTIONS (3)
  - PAIN [None]
  - PRODUCT QUALITY ISSUE [None]
  - WRONG TECHNIQUE IN DRUG USAGE PROCESS [None]
